FAERS Safety Report 5181167-7 (Version None)
Quarter: 2006Q4

REPORT INFORMATION
  Report Type: 
  Country: None (occurrence: None)
  Receive Date: 20061220
  Receipt Date: 20061212
  Transmission Date: 20070319
  Serious: Yes (Other)
  Sender: FDA-Public Use
  Company Number: CH-JNJFOC-20061203171

PATIENT
  Sex: Female

DRUGS (9)
  1. CAELYX [Suspect]
     Indication: BREAST CANCER
     Route: 042
  2. DEXAMETHASONE [Concomitant]
  3. TAVEGYL [Concomitant]
  4. ZANTIC [Concomitant]
  5. MORPHINE [Concomitant]
  6. ANXIOLIT [Concomitant]
  7. CLAVAMOX [Concomitant]
     Indication: TOOTH INFECTION
  8. ZOFRAN [Concomitant]
  9. MEPHAMESONE [Concomitant]

REACTIONS (6)
  - COUGH [None]
  - ERYTHEMA [None]
  - INFUSION RELATED REACTION [None]
  - LOSS OF CONSCIOUSNESS [None]
  - PAIN [None]
  - PARALYSIS [None]
